FAERS Safety Report 9502724 (Version 2)
Quarter: 2013Q4

REPORT INFORMATION
  Report Type: Spontaneous
  Country: FR (occurrence: FR)
  Receive Date: 20130906
  Receipt Date: 20131021
  Transmission Date: 20140711
  Serious: Yes (Other)
  Sender: FDA-Public Use
  Company Number: FR-UCBSA-096352

PATIENT
  Sex: Female

DRUGS (1)
  1. KEPPRA [Suspect]
     Dates: start: 2012

REACTIONS (2)
  - Platelet disorder [Not Recovered/Not Resolved]
  - Thrombocytopenia [Not Recovered/Not Resolved]
